FAERS Safety Report 15575806 (Version 2)
Quarter: 2018Q4

REPORT INFORMATION
  Report Type: Spontaneous
  Country: JP (occurrence: JP)
  Receive Date: 20181101
  Receipt Date: 20181213
  Transmission Date: 20190205
  Serious: Yes (Hospitalization, Other)
  Sender: FDA-Public Use
  Company Number: JP-ROCHE-2205904

PATIENT
  Age: 68 Year
  Sex: Male

DRUGS (1)
  1. DENOSINE (JAPAN) [Suspect]
     Active Substance: GANCICLOVIR
     Indication: PRODUCT USED FOR UNKNOWN INDICATION
     Route: 041
     Dates: start: 20180928, end: 20180928

REACTIONS (2)
  - Accidental overdose [Unknown]
  - Dialysis [Unknown]

NARRATIVE: CASE EVENT DATE: 20180928
